FAERS Safety Report 5628107-1 (Version None)
Quarter: 2008Q1

REPORT INFORMATION
  Report Type: 
  Country: None (occurrence: None)
  Receive Date: 20080215
  Receipt Date: 20080204
  Transmission Date: 20080703
  Serious: Yes (Other)
  Sender: FDA-Public Use
  Company Number: US-ELI_LILLY_AND_COMPANY-US200802000636

PATIENT
  Age: 78 Year
  Sex: Female

DRUGS (3)
  1. EVISTA [Suspect]
     Indication: OSTEOPOROSIS
     Dosage: 60 MG, DAILY (1/D)
     Dates: start: 20070201
  2. VITAMIN D [Concomitant]
     Dosage: 50000 IU, MONTHLY (1/M)
  3. ARNICA MONTANA [Concomitant]
     Indication: CONTUSION
     Dosage: UNK UNK, AS NEEDED

REACTIONS (1)
  - DENTAL OPERATION [None]
